FAERS Safety Report 5096519-3 (Version None)
Quarter: 2006Q3

REPORT INFORMATION
  Report Type: 
  Country: None (occurrence: None)
  Receive Date: 20060830
  Receipt Date: 20060818
  Transmission Date: 20061208
  Serious: Yes (Hospitalization)
  Sender: FDA-Public Use
  Company Number: 2006AD000063

PATIENT
  Age: 84 Year
  Sex: Female

DRUGS (6)
  1. CEPHALEXIN [Suspect]
     Indication: URINARY TRACT INFECTION
     Dosage: PO
     Route: 048
  2. TRIMETHOPRIM [Suspect]
     Indication: URINARY TRACT INFECTION
     Dosage: 200 MG, UNK; PO
     Route: 048
     Dates: end: 20060623
  3. BENDROFLUMETHIAZIDE [Concomitant]
  4. OMEPRAZOLE [Concomitant]
  5. PARACETAMOL [Concomitant]
  6. PROPRANOLOL [Concomitant]

REACTIONS (2)
  - ERYTHEMA MULTIFORME [None]
  - URINARY TRACT INFECTION [None]
